FAERS Safety Report 12070432 (Version 1)
Quarter: 2016Q1

REPORT INFORMATION
  Report Type: Spontaneous
  Country: NO (occurrence: NO)
  Receive Date: 20160211
  Receipt Date: 20160211
  Transmission Date: 20160526
  Serious: Yes (Death)
  Sender: FDA-Public Use
  Company Number: NO-BAYER-2016-021712

PATIENT
  Age: 68 Year
  Sex: Female

DRUGS (10)
  1. NARDIL [Concomitant]
     Active Substance: PHENELZINE SULFATE
     Indication: DEPRESSION
     Dosage: 15 MG, BID
     Route: 048
  2. NITROGLYCERIN. [Concomitant]
     Active Substance: NITROGLYCERIN
     Dosage: 0,4 MG + 10 ML/T
  3. KLEXANE [Suspect]
     Active Substance: ENOXAPARIN
     Indication: ACUTE CORONARY SYNDROME
     Dosage: 140 MG (80 MG + 20150813: 60 MG), UNK
     Dates: start: 20150812, end: 20150813
  4. PARACET [Concomitant]
     Active Substance: ACETAMINOPHEN
     Dosage: 1 G, UNK
  5. ACETYLSALICYLIC ACID (} 100 MG) [Suspect]
     Active Substance: ASPIRIN
     Indication: ACUTE CORONARY SYNDROME
     Dosage: 300 MG, QD
     Route: 048
     Dates: start: 20150812, end: 20150812
  6. MORFIN [Concomitant]
     Active Substance: MORPHINE SULFATE
     Dosage: 5 MG, UNK
  7. BRILIQUE [Suspect]
     Active Substance: TICAGRELOR
     Indication: ACUTE CORONARY SYNDROME
     Dosage: 270 MG (SINGLE BOLUS DOSE 180 MG + 20150813: 90 MG ONCE), UNK
     Route: 048
     Dates: start: 20150812, end: 20150813
  8. ORFIRIL [Concomitant]
     Active Substance: VALPROIC ACID
     Indication: DEPRESSION
     Dosage: 600 MG, BID
     Route: 048
  9. ALBYL-E [Suspect]
     Active Substance: ASPIRIN\MAGNESIUM OXIDE
     Dosage: UNK
     Route: 048
  10. AFIPRAN [Concomitant]
     Dosage: 10 MG, BID

REACTIONS (3)
  - Spinal cord haemorrhage [Fatal]
  - Subarachnoid haemorrhage [Fatal]
  - Quadriparesis [Fatal]

NARRATIVE: CASE EVENT DATE: 20150813
